FAERS Safety Report 4932070-6 (Version None)
Quarter: 2006Q1

REPORT INFORMATION
  Report Type: 
  Country: None (occurrence: None)
  Receive Date: 20060228
  Receipt Date: 20060208
  Transmission Date: 20060701
  Serious: Yes (Death, Other)
  Sender: FDA-Public Use
  Company Number: JP_050707131

PATIENT
  Age: 51 Year
  Sex: Male

DRUGS (7)
  1. GEMZAR [Suspect]
     Indication: PANCREATIC CARCINOMA METASTATIC
     Dosage: SEE IMAGE
     Route: 042
     Dates: start: 20031006
  2. GEMZAR [Suspect]
     Indication: PANCREATIC CARCINOMA METASTATIC
     Dosage: SEE IMAGE
     Route: 042
     Dates: start: 20040401
  3. NEDAPLATIN (NEDAPLATIN) [Concomitant]
  4. OXALIPLATIN (OXALIPLATIN) [Concomitant]
  5. HERCEPTIN ^GENENTECH^ (TRASTUZUMAB) [Concomitant]
  6. SEROTONE (AZASETRON HYDROCHLORIDE) [Concomitant]
  7. DECADRON [Concomitant]

REACTIONS (9)
  - ANGIOPATHY [None]
  - BACK PAIN [None]
  - CARBOHYDRATE ANTIGEN 19-9 INCREASED [None]
  - DUODENAL ULCER HAEMORRHAGE [None]
  - GASTROINTESTINAL DISORDER [None]
  - HYPOGEUSIA [None]
  - NEOPLASM PROGRESSION [None]
  - SENSORY DISTURBANCE [None]
  - THROMBOPHLEBITIS [None]
